FAERS Safety Report 17574920 (Version 2)
Quarter: 2020Q1

REPORT INFORMATION
  Report Type: Spontaneous
  Country: GB (occurrence: GB)
  Receive Date: 20200324
  Receipt Date: 20200327
  Transmission Date: 20200409
  Serious: Yes (Other)
  Sender: FDA-Public Use
  Company Number: GB-TEVA-2019-GB-1056990

PATIENT
  Age: 51 Year
  Sex: Female
  Weight: 67 kg

DRUGS (3)
  1. MEFENAMIC ACID. [Concomitant]
     Active Substance: MEFENAMIC ACID
     Dosage: DURING FIRST 4 DAYS OF PERIOD
     Dates: start: 20180417
  2. TRANEXAMIC ACID. [Concomitant]
     Active Substance: TRANEXAMIC ACID
     Dosage: FOR 4 DAYS DURING P...
     Dates: start: 20180417
  3. NORETHISTERONE [Suspect]
     Active Substance: NORETHINDRONE
     Dosage: ON DAYS 12-26 O...
     Dates: start: 20190207

REACTIONS (2)
  - Obstetrical pulmonary embolism [Not Recovered/Not Resolved]
  - VIth nerve paralysis [Unknown]

NARRATIVE: CASE EVENT DATE: 20190427
